FAERS Safety Report 20763841 (Version 1)
Quarter: 2022Q2

REPORT INFORMATION
  Report Type: Spontaneous
  Country: US (occurrence: US)
  Receive Date: 20220428
  Receipt Date: 20220428
  Transmission Date: 20220721
  Serious: No
  Sender: FDA-Public Use
  Company Number: US-PFIZER INC-202200020042

PATIENT
  Age: 61 Year
  Sex: Male
  Weight: 93.89 kg

DRUGS (3)
  1. CHANTIX [Suspect]
     Active Substance: VARENICLINE TARTRATE
     Indication: Smoking cessation therapy
     Dosage: (1 MG TABLETS IN HALF AND TAKES 1/2 TABLET TWICE A DAY)
     Dates: start: 20211227
  2. LISINOPRIL [Concomitant]
     Active Substance: LISINOPRIL
     Indication: Hypertension
     Dosage: 40 MG, 2X/DAY
  3. DILTIAZEM [Concomitant]
     Active Substance: DILTIAZEM
     Indication: Hypertension
     Dosage: 180 MG, 1X/DAY

REACTIONS (7)
  - Intentional product misuse [Unknown]
  - Wrong technique in product usage process [Unknown]
  - Irritability [Unknown]
  - Insomnia [Unknown]
  - Abnormal dreams [Unknown]
  - Nightmare [Unknown]
  - Nausea [Recovered/Resolved]
